FAERS Safety Report 4332599-8 (Version None)
Quarter: 2004Q1

REPORT INFORMATION
  Report Type: 
  Country: None (occurrence: None)
  Receive Date: 20040330
  Receipt Date: 20040224
  Transmission Date: 20041129
  Serious: Yes (Life-Threatening)
  Sender: FDA-Public Use
  Company Number: 02100-JPN-04-0042

PATIENT
  Age: 61 Year
  Sex: Female

DRUGS (8)
  1. CILOSTAZOL [Suspect]
     Indication: CEREBRAL INFARCTION
     Dosage: 200 MG ORAL
     Route: 048
     Dates: start: 20040219, end: 20040224
  2. NILVADIPINE [Concomitant]
  3. FAMOTIDINE [Concomitant]
  4. EDARAVONE [Concomitant]
  5. FASUDIL HYDROCHLORIDE [Concomitant]
  6. PHENYTOIN [Concomitant]
  7. MAGNESIUM OXIDE [Concomitant]
  8. SENNOSIDE [Concomitant]

REACTIONS (10)
  - BLOOD PRESSURE INCREASED [None]
  - HAEMATOCRIT DECREASED [None]
  - HAEMOGLOBIN DECREASED [None]
  - HAEMORRHAGIC CEREBRAL INFARCTION [None]
  - PLATELET COUNT DECREASED [None]
  - PLATELET COUNT INCREASED [None]
  - PROTHROMBIN TIME PROLONGED [None]
  - PUPILS UNEQUAL [None]
  - WHITE BLOOD CELL COUNT DECREASED [None]
  - WHITE BLOOD CELL COUNT INCREASED [None]
